FAERS Safety Report 9698993 (Version 1)
Quarter: 2013Q4

REPORT INFORMATION
  Report Type: Spontaneous
  Country: US (occurrence: None)
  Receive Date: 20131118
  Receipt Date: 20131118
  Transmission Date: 20140711
  Serious: Yes (Hospitalization)
  Sender: FDA-Public Use
  Company Number: 2013US002808

PATIENT
  Age: 59 Year
  Sex: Female

DRUGS (1)
  1. ICLUSIG (PONATINIB) TABLET, 45MG [Suspect]
     Indication: CHRONIC MYELOID LEUKAEMIA
     Route: 048
     Dates: start: 20130807, end: 2013

REACTIONS (10)
  - Hypoaesthesia [None]
  - Diplopia [None]
  - Trismus [None]
  - Neck pain [None]
  - Migraine [None]
  - Loss of consciousness [None]
  - Bone pain [None]
  - Dizziness [None]
  - Oropharyngeal pain [None]
  - Nausea [None]
